FAERS Safety Report 6966754-5 (Version None)
Quarter: 2010Q3

REPORT INFORMATION
  Report Type: 
  Country: None (occurrence: None)
  Receive Date: 20100906
  Receipt Date: 20100831
  Transmission Date: 20110219
  Serious: Yes (Hospitalization)
  Sender: FDA-Public Use
  Company Number: US-SANOFI-AVENTIS-2010SA047589

PATIENT
  Age: 65 Year
  Sex: Male
  Weight: 84.1 kg

DRUGS (18)
  1. JEVTANA KIT [Suspect]
     Indication: PROSTATE CANCER METASTATIC
     Route: 041
     Dates: start: 20100728, end: 20100728
  2. PREDNISONE [Suspect]
     Indication: PREMEDICATION
  3. DIPHENHYDRAMINE HYDROCHLORIDE [Concomitant]
  4. METOCLOPRAMIDE [Concomitant]
  5. LUPRON [Concomitant]
     Dosage: EVERY FOUR MONTHS
     Route: 030
  6. ULTRACET [Concomitant]
     Dosage: 37.5-325 MG
  7. ALPRAZOLAM [Concomitant]
  8. ALL OTHER THERAPEUTIC PRODUCTS [Concomitant]
     Dosage: DOSE:1 TEASPOON(S)
  9. OMEPRAZOLE [Concomitant]
  10. PROCHLORPERAZINE MALEATE [Concomitant]
     Indication: NAUSEA
  11. MACROBID [Concomitant]
  12. PROPOXYPHENE NAPSYLATE W/ ACETAMINOPHEN [Concomitant]
     Dosage: 100-650 MG TABS FOUR TIMES PER DAY
  13. KETOCONAZOLE [Concomitant]
     Route: 048
  14. KETOCONAZOLE [Concomitant]
  15. KAYEXALATE [Concomitant]
     Dosage: TWO DOSES ONE HOUR APART
  16. VICODIN [Concomitant]
     Indication: PAIN
     Dosage: 5-500 MG TABS ONE TO TWO PRN
  17. DURAGESIC-100 [Concomitant]
     Dosage: 50 50 MCG/HR ONE EVERY THREE DAYS
  18. HUMULIN R [Concomitant]
     Dosage: 30 UNITS IN THE AM, 10 UNITS IN THE PM

REACTIONS (3)
  - DIABETES MELLITUS INADEQUATE CONTROL [None]
  - NEUTROPENIA [None]
  - PLATELET COUNT DECREASED [None]
